FAERS Safety Report 10396838 (Version 2)
Quarter: 2014Q3

REPORT INFORMATION
  Report Type: Spontaneous
  Country: US (occurrence: None)
  Receive Date: 20130815
  Receipt Date: 20140815
  Transmission Date: 20150326
  Serious: Yes (Hospitalization, Other)
  Sender: FDA-Public Use
  Company Number: ADR-2013-00437

PATIENT
  Sex: Female

DRUGS (2)
  1. ORAL BACLOFEN [Concomitant]
     Active Substance: BACLOFEN
  2. LIORESAL [Suspect]
     Active Substance: BACLOFEN
     Indication: MUSCLE SPASTICITY
     Dosage: 210 MCG/DAY

REACTIONS (6)
  - Irritability [None]
  - Drug withdrawal syndrome [None]
  - Gait disturbance [None]
  - Pruritus [None]
  - Clonus [None]
  - Muscle spasms [None]
